FAERS Safety Report 9529463 (Version 2)
Quarter: 2013Q4

REPORT INFORMATION
  Report Type: Report from Study
  Country: JP (occurrence: JP)
  Receive Date: 20130917
  Receipt Date: 20131017
  Transmission Date: 20140711
  Serious: No
  Sender: FDA-Public Use
  Company Number: PHHY2013JP102164

PATIENT
  Age: 75 Year
  Sex: Male

DRUGS (8)
  1. AMN107 [Suspect]
     Indication: CHRONIC MYELOID LEUKAEMIA
     Dosage: 400 MG, BID
     Route: 048
     Dates: start: 20100305, end: 20100315
  2. AMN107 [Suspect]
     Dosage: 400 MG, BID
     Route: 048
     Dates: start: 20100317, end: 20130214
  3. AMN107 [Suspect]
     Dosage: 600 MG, DAILY
     Route: 048
     Dates: start: 20130215
  4. ACINON [Concomitant]
     Indication: DYSPEPSIA
     Dosage: 300 MG
     Route: 048
     Dates: start: 20100319, end: 20100415
  5. DAIMEDIN [Concomitant]
     Dosage: 75 MG
     Route: 048
  6. ELIETEN [Concomitant]
     Dosage: 30 MG
     Route: 048
     Dates: start: 20111006, end: 20111105
  7. OMEPRAL [Concomitant]
     Indication: DYSPEPSIA
     Dosage: 20 MG
     Dates: start: 20100316, end: 20100318
  8. TAKEPRON [Concomitant]
     Dosage: UNK UKN, UNK
     Dates: start: 20111113

REACTIONS (1)
  - Aspartate aminotransferase increased [Recovered/Resolved]
